FAERS Safety Report 6167830-X (Version None)
Quarter: 2009Q2

REPORT INFORMATION
  Report Type: 
  Country: None (occurrence: None)
  Receive Date: 20090423
  Receipt Date: 20090409
  Transmission Date: 20091009
  Serious: Yes (Other)
  Sender: FDA-Public Use
  Company Number: 2009-0507

PATIENT
  Age: 60 Year
  Sex: Female

DRUGS (1)
  1. SOMATULINE L.P. 90MG (LANREOTIDE ACETATE) (LANREOTIDE ACETATE) [Suspect]
     Indication: ACROMEGALY
     Dosage: (90 MG,) SUBCUTANEOUS
     Route: 058

REACTIONS (3)
  - CHOLESTASIS [None]
  - CYTOLYTIC HEPATITIS [None]
  - MICROLITHIASIS [None]
